FAERS Safety Report 5107208-0 (Version None)
Quarter: 2006Q3

REPORT INFORMATION
  Report Type: 
  Country: None (occurrence: None)
  Receive Date: 20060913
  Receipt Date: 20060823
  Transmission Date: 20061208
  Serious: Yes (Hospitalization)
  Sender: FDA-Public Use
  Company Number: US200608001473

PATIENT
  Age: 81 Year
  Sex: Female
  Weight: 50.3 kg

DRUGS (9)
  1. FORTEO [Suspect]
     Indication: OSTEOPOROSIS
     Dates: start: 20060111
  2. FORTEO PEN (FORTEO PEN) [Concomitant]
  3. ASACOL [Concomitant]
  4. PREDNISONE TAB [Concomitant]
  5. HYDROCHLOROTHIAZIDE [Concomitant]
  6. POTASSIUM CHLORIDE (POTASSIUM CHLORIDE UNKNOWN FORMULATION) [Concomitant]
  7. AVAPRO [Concomitant]
  8. ASA (ASPIRIN (ACETYLSALICYLIC ACID) UNKNOWN FORMULATION) [Concomitant]
  9. MULTIVITAMIN [Concomitant]

REACTIONS (9)
  - COLITIS ULCERATIVE [None]
  - DEHYDRATION [None]
  - DEMENTIA [None]
  - DRUG INEFFECTIVE [None]
  - FLUID INTAKE REDUCED [None]
  - FRUSTRATION [None]
  - ORAL INTAKE REDUCED [None]
  - PHARMACEUTICAL PRODUCT COMPLAINT [None]
  - SYNCOPE [None]
